FAERS Safety Report 21202351 (Version 3)
Quarter: 2023Q4

REPORT INFORMATION
  Report Type: Spontaneous
  Country: US (occurrence: US)
  Receive Date: 20220811
  Receipt Date: 20231106
  Transmission Date: 20240109
  Serious: No
  Sender: FDA-Public Use
  Company Number: US-PFIZER INC-PV202200041258

PATIENT
  Age: 71 Year
  Sex: Female

DRUGS (1)
  1. IBRANCE [Suspect]
     Active Substance: PALBOCICLIB
     Indication: Breast cancer metastatic
     Dosage: 125 MG, TAKE 1 TABLET BY MOUTH DAILY ON DAYS 1-21 DAY OF A 28 DAY CYCLE
     Route: 048

REACTIONS (2)
  - Anaemia [Unknown]
  - Cough [Unknown]
